FAERS Safety Report 20630648 (Version 5)
Quarter: 2023Q1

REPORT INFORMATION
  Report Type: Spontaneous
  Country: US (occurrence: US)
  Receive Date: 20220324
  Receipt Date: 20230215
  Transmission Date: 20230418
  Serious: Yes (Other)
  Sender: FDA-Public Use
  Company Number: US-SA-2022SA097609

PATIENT
  Age: 29 Year
  Sex: Male

DRUGS (8)
  1. ALPROLIX [Suspect]
     Active Substance: EFTRENONACOG ALFA
     Indication: Factor IX deficiency
     Dosage: 3455 IU, PRN
     Route: 042
     Dates: start: 202201
  2. ALPROLIX [Suspect]
     Active Substance: EFTRENONACOG ALFA
     Indication: Factor IX deficiency
     Dosage: 3455 IU, PRN
     Route: 042
     Dates: start: 202201
  3. ALPROLIX [Suspect]
     Active Substance: EFTRENONACOG ALFA
     Dosage: 6900 IU, Q10D
     Route: 042
  4. ALPROLIX [Suspect]
     Active Substance: EFTRENONACOG ALFA
     Dosage: 6900 IU, Q10D
     Route: 042
  5. ALPROLIX [Suspect]
     Active Substance: EFTRENONACOG ALFA
     Dosage: 7170 IU, Q10D, STRENGTH: 3029U, 4128U
     Route: 042
     Dates: start: 20220222
  6. ALPROLIX [Suspect]
     Active Substance: EFTRENONACOG ALFA
     Dosage: 7170 IU, Q10D, STRENGTH: 3029U, 4128U
     Route: 042
     Dates: start: 20220222
  7. ALPROLIX [Suspect]
     Active Substance: EFTRENONACOG ALFA
     Dosage: 7170 IU, Q10D (STRENGTH: 2145U. 268 U)
     Route: 042
     Dates: start: 20220223
  8. ALPROLIX [Suspect]
     Active Substance: EFTRENONACOG ALFA
     Dosage: 7170 IU, Q10D (STRENGTH: 2145U. 268 U)
     Route: 042
     Dates: start: 20220223

REACTIONS (5)
  - Haemorrhage [Recovered/Resolved]
  - Haemorrhage [Recovered/Resolved]
  - Haemorrhage [Not Recovered/Not Resolved]
  - Haemorrhage [Recovered/Resolved]
  - Haemorrhage [Unknown]

NARRATIVE: CASE EVENT DATE: 20220309
